FAERS Safety Report 7495274-7 (Version None)
Quarter: 2011Q2

REPORT INFORMATION
  Report Type: 
  Country: None (occurrence: None)
  Receive Date: 20110523
  Receipt Date: 20110517
  Transmission Date: 20111010
  Serious: Yes (Death, Hospitalization)
  Sender: FDA-Public Use
  Company Number: DE-BRISTOL-MYERS SQUIBB COMPANY-15647811

PATIENT
  Age: 46 Year
  Sex: Male

DRUGS (10)
  1. CISPLATIN [Suspect]
     Indication: HEAD AND NECK CANCER
     Dosage: STOPPED
     Route: 042
     Dates: start: 20110125
  2. GABAPENTIN [Concomitant]
  3. FLUCONAZOLE [Concomitant]
  4. DOXYCYCLINE [Concomitant]
  5. CETUXIMAB [Suspect]
     Indication: HEAD AND NECK CANCER
     Dosage: STOPPED
     Route: 042
     Dates: start: 20110125
  6. ARCOXIA [Concomitant]
  7. MORPHINE [Concomitant]
  8. FLUOROURACIL [Suspect]
     Indication: HEAD AND NECK CANCER
     Dosage: STOPPED
     Route: 042
     Dates: start: 20110125
  9. PANTOPRAZOLE [Concomitant]
  10. MOVIPREP [Concomitant]

REACTIONS (1)
  - ACUTE HEPATIC FAILURE [None]
